FAERS Safety Report 23303995 (Version 1)
Quarter: 2023Q4

REPORT INFORMATION
  Report Type: Spontaneous
  Country: CH (occurrence: None)
  Receive Date: 20231215
  Receipt Date: 20231215
  Transmission Date: 20240109
  Serious: Yes (Life-Threatening, Hospitalization, Other)
  Sender: FDA-Public Use
  Company Number: 2023A283630

PATIENT
  Age: 371 Month
  Sex: Male

DRUGS (17)
  1. FASENRA [Suspect]
     Active Substance: BENRALIZUMAB
     Route: 058
     Dates: start: 20190624
  2. TEZSPIRE [Suspect]
     Active Substance: TEZEPELUMAB-EKKO
     Route: 058
     Dates: start: 20231108
  3. MONTELUKAST [Concomitant]
     Active Substance: MONTELUKAST SODIUM
  4. NUCALA [Concomitant]
     Active Substance: MEPOLIZUMAB
  5. CORTISONE [Concomitant]
     Active Substance: CORTISONE
  6. CORTISONE [Concomitant]
     Active Substance: CORTISONE
     Dosage: 10-20 MG
  7. PREDNISOLONE [Concomitant]
     Active Substance: PREDNISOLONE
  8. PREDNISOLONE [Concomitant]
     Active Substance: PREDNISOLONE
  9. PREDNISOLONE [Concomitant]
     Active Substance: PREDNISOLONE
  10. PREDNISOLONE [Concomitant]
     Active Substance: PREDNISOLONE
     Dates: start: 2019, end: 202011
  11. PREDNISOLONE [Concomitant]
     Active Substance: PREDNISOLONE
  12. PREDNISOLONE [Concomitant]
     Active Substance: PREDNISOLONE
     Dosage: LESS THAN 2.5 MG DAILY IN THE MORNING
  13. DUPILUMAB [Concomitant]
     Active Substance: DUPILUMAB
  14. FLUTICASONE PROPIONATE [Concomitant]
     Active Substance: FLUTICASONE PROPIONATE
     Dosage: 2 X 1/2 AMP. (AMPOULE) DAILY
     Route: 061
  15. ALVESCO [Concomitant]
     Active Substance: CICLESONIDE
     Dosage: 8 PUFFS 160 (UNKNOWN UNITS)
  16. FLUTICASONE PROPIONATE\FORMOTEROL FUMARATE [Concomitant]
     Active Substance: FLUTICASONE PROPIONATE\FORMOTEROL FUMARATE
     Dosage: 250/10 2 X 2 PUFFS DAILY
  17. SPIRIVA [Concomitant]
     Active Substance: TIOTROPIUM BROMIDE MONOHYDRATE
     Dosage: 2 PUFFS

REACTIONS (13)
  - Asthma [Unknown]
  - Seizure [Unknown]
  - Myocarditis [Unknown]
  - Lung disorder [Unknown]
  - Addison^s disease [Unknown]
  - Secondary adrenocortical insufficiency [Unknown]
  - Anaphylactic reaction [Unknown]
  - Rash [Unknown]
  - Fatigue [Unknown]
  - Decreased appetite [Unknown]
  - Weight decreased [Unknown]
  - Arthralgia [Unknown]
  - Headache [Unknown]

NARRATIVE: CASE EVENT DATE: 20190701
